FAERS Safety Report 18103589 (Version 1)
Quarter: 2020Q3

REPORT INFORMATION
  Report Type: Spontaneous
  Country: US (occurrence: US)
  Receive Date: 20200731
  Receipt Date: 20200731
  Transmission Date: 20201103
  Serious: Yes (Other)
  Sender: FDA-Public Use
  Company Number: None

PATIENT
  Age: 54 Year
  Sex: Female
  Weight: 47.25 kg

DRUGS (2)
  1. JERMEE HAND SANITIZER [Suspect]
     Active Substance: ALCOHOL
     Indication: INFECTION PROPHYLAXIS
     Route: 061
     Dates: start: 20200721, end: 20200721
  2. ONE A DAY VITAMINS [Concomitant]
     Active Substance: VITAMINS

REACTIONS (8)
  - Dermatitis [None]
  - Throat irritation [None]
  - Suspected product quality issue [None]
  - Dizziness [None]
  - Skin burning sensation [None]
  - Erythema [None]
  - Dyspnoea [None]
  - Chest pain [None]

NARRATIVE: CASE EVENT DATE: 20200721
